FAERS Safety Report 23873268 (Version 2)
Quarter: 2024Q2

REPORT INFORMATION
  Report Type: Report from Study
  Country: CA (occurrence: CA)
  Receive Date: 20240520
  Receipt Date: 20240526
  Transmission Date: 20240716
  Serious: Yes (Other)
  Sender: FDA-Public Use
  Company Number: CA-ABBVIE-5765433

PATIENT
  Age: 76 Year
  Sex: Male

DRUGS (1)
  1. SKYRIZI [Suspect]
     Active Substance: RISANKIZUMAB-RZAA
     Indication: Psoriasis
     Route: 058
     Dates: start: 20200511, end: 2022

REACTIONS (2)
  - Tuberculosis [Recovered/Resolved]
  - Dementia [Unknown]

NARRATIVE: CASE EVENT DATE: 20230701
